FAERS Safety Report 19289918 (Version 1)
Quarter: 2021Q2

REPORT INFORMATION
  Report Type: Spontaneous
  Country: US (occurrence: US)
  Receive Date: 20210521
  Receipt Date: 20210521
  Transmission Date: 20210717
  Serious: No
  Sender: FDA-Public Use
  Company Number: US-RADIUS HEALTH INC.-2020US003289

PATIENT
  Age: 81 Year
  Sex: Female
  Weight: 53.52 kg

DRUGS (3)
  1. TYMLOS [Suspect]
     Active Substance: ABALOPARATIDE
     Indication: OSTEOPOROSIS
     Dosage: 80MCG/QD
     Route: 058
     Dates: start: 20200501, end: 20200921
  2. TYMLOS [Suspect]
     Active Substance: ABALOPARATIDE
     Dosage: 80MCG/QD
     Route: 058
  3. TYMLOS [Suspect]
     Active Substance: ABALOPARATIDE
     Dosage: 80MCG/QD
     Route: 058
     Dates: end: 20201204

REACTIONS (2)
  - Bone pain [Not Recovered/Not Resolved]
  - Product dose omission issue [Unknown]

NARRATIVE: CASE EVENT DATE: 20200814
